FAERS Safety Report 8051098-3 (Version None)
Quarter: 2012Q1

REPORT INFORMATION
  Report Type: 
  Country: None (occurrence: None)
  Receive Date: 20120117
  Receipt Date: 20120112
  Transmission Date: 20120608
  Serious: Yes (Death, Other)
  Sender: FDA-Public Use
  Company Number: PHHY2012MX002922

PATIENT
  Sex: Male

DRUGS (1)
  1. STALEVO 100 [Suspect]
     Indication: PARKINSON'S DISEASE
     Dosage: 3 TABLETS (200 MG/150 MG/37.5 MG) BY A DAY
     Route: 048
     Dates: start: 20080901

REACTIONS (2)
  - DEATH [None]
  - CARDIAC ARREST [None]
